FAERS Safety Report 5274508-3 (Version None)
Quarter: 2007Q1

REPORT INFORMATION
  Report Type: 
  Country: None (occurrence: None)
  Receive Date: 20070320
  Receipt Date: 20070308
  Transmission Date: 20070707
  Serious: Yes (Death)
  Sender: FDA-Public Use
  Company Number: 2006S1000288

PATIENT
  Sex: 0

DRUGS (1)
  1. CUBICIN [Suspect]

REACTIONS (1)
  - DEATH [None]
